FAERS Safety Report 6396361-7 (Version None)
Quarter: 2009Q4

REPORT INFORMATION
  Report Type: 
  Country: None (occurrence: None)
  Receive Date: 20091012
  Receipt Date: 20090928
  Transmission Date: 20100525
  Serious: Yes (Hospitalization, Other)
  Sender: FDA-Public Use
  Company Number: PHEH2009US12429

PATIENT
  Sex: Female

DRUGS (3)
  1. GLEEVEC [Suspect]
     Indication: GASTRIC CANCER
     Dosage: 400 MG, QD
     Route: 048
     Dates: start: 20090415
  2. GLEEVEC [Suspect]
     Dosage: NO TREATMENT
  3. GLEEVEC [Suspect]
     Dosage: UNK

REACTIONS (4)
  - ANAEMIA [None]
  - CENTRAL VENOUS CATHETERISATION [None]
  - EYE OEDEMA [None]
  - TREMOR [None]
